FAERS Safety Report 9402039 (Version 5)
Quarter: 2016Q1

REPORT INFORMATION
  Report Type: Spontaneous
  Country: JP (occurrence: JP)
  Receive Date: 20130716
  Receipt Date: 20160329
  Transmission Date: 20160526
  Serious: Yes (Hospitalization, Other)
  Sender: FDA-Public Use
  Company Number: PHHY2013JP074391

PATIENT
  Age: 68 Year
  Sex: Male
  Weight: 77 kg

DRUGS (5)
  1. FP-OD [Concomitant]
     Active Substance: SELEGILINE HYDROCHLORIDE
     Indication: PARKINSON^S DISEASE
     Dosage: 2.5 MG, UNK
     Route: 048
     Dates: start: 20061120
  2. COMTAN [Suspect]
     Active Substance: ENTACAPONE
     Indication: PARKINSON^S DISEASE
     Dosage: 300 MG, QD
     Route: 048
     Dates: start: 2007, end: 20130709
  3. COMTAN [Suspect]
     Active Substance: ENTACAPONE
     Dosage: 100 MG, TID
     Route: 048
     Dates: start: 2007, end: 20130709
  4. BI-SIFROL [Concomitant]
     Active Substance: PRAMIPEXOLE
     Indication: PARKINSON^S DISEASE
     Dosage: 1.5 MG, UNK
     Route: 048
     Dates: start: 20041105
  5. NEODOPASTON [Concomitant]
     Active Substance: CARBIDOPA\LEVODOPA
     Indication: PARKINSON^S DISEASE
     Dosage: 600 MG, UNK
     Route: 048
     Dates: start: 2004

REACTIONS (11)
  - Blood urea increased [Unknown]
  - Syncope [Recovered/Resolved]
  - Loss of consciousness [Recovered/Resolved]
  - Gastric ulcer haemorrhage [Recovered/Resolved]
  - Atrial fibrillation [Unknown]
  - Blood triglycerides decreased [Unknown]
  - Faeces discoloured [Recovered/Resolved]
  - Concomitant disease aggravated [Recovered/Resolved]
  - Ventricular tachycardia [Recovered/Resolved]
  - Adams-Stokes syndrome [Unknown]
  - Cardiac disorder [Recovered/Resolved]

NARRATIVE: CASE EVENT DATE: 2009
